FAERS Safety Report 13717642 (Version 1)
Quarter: 2017Q3

REPORT INFORMATION
  Report Type: Spontaneous
  Country: IT (occurrence: IT)
  Receive Date: 20170705
  Receipt Date: 20170705
  Transmission Date: 20171127
  Serious: Yes (Other)
  Sender: FDA-Public Use
  Company Number: IT-GLAXOSMITHKLINE-IT2017GSK102131

PATIENT
  Age: 39 Year
  Sex: Male

DRUGS (2)
  1. KIVEXA [Suspect]
     Active Substance: ABACAVIR SULFATE\LAMIVUDINE
     Indication: ACUTE HIV INFECTION
     Dosage: 900 MG, QD
     Route: 048
  2. EVOTAZ [Suspect]
     Active Substance: ATAZANAVIR SULFATE\COBICISTAT
     Indication: ACUTE HIV INFECTION
     Dosage: 450 MG, UNK

REACTIONS (1)
  - Hepatitis [Recovering/Resolving]

NARRATIVE: CASE EVENT DATE: 20170427
